FAERS Safety Report 10904241 (Version 1)
Quarter: 2015Q1

REPORT INFORMATION
  Report Type: Spontaneous
  Country: US (occurrence: None)
  Receive Date: 20150304
  Receipt Date: 20150304
  Transmission Date: 20150721
  Serious: No
  Sender: FDA-Public Use
  Company Number: None

PATIENT
  Age: 41 Year

DRUGS (9)
  1. SIMVASTATIN. [Suspect]
     Active Substance: SIMVASTATIN
     Indication: BLOOD CHOLESTEROL INCREASED
     Route: 048
  2. LAMTRIGINE [Concomitant]
  3. OMEPRAZOLE. [Concomitant]
     Active Substance: OMEPRAZOLE
  4. SINGULAIR [Concomitant]
     Active Substance: MONTELUKAST SODIUM
  5. VERAPAMIL [Concomitant]
     Active Substance: VERAPAMIL HYDROCHLORIDE
  6. LORATADINE. [Concomitant]
     Active Substance: LORATADINE
  7. LISINOPRIL. [Concomitant]
     Active Substance: LISINOPRIL
  8. FLOVENT HFA [Concomitant]
     Active Substance: FLUTICASONE PROPIONATE
  9. HEMP PROTEIN POWDER [Concomitant]

REACTIONS (15)
  - Asthenia [None]
  - Tenderness [None]
  - Myalgia [None]
  - Somnolence [None]
  - Headache [None]
  - Arthralgia [None]
  - Nasopharyngitis [None]
  - Dry skin [None]
  - Insomnia [None]
  - Swelling [None]
  - Confusional state [None]
  - Chromaturia [None]
  - Dry mouth [None]
  - Memory impairment [None]
  - Thirst [None]

NARRATIVE: CASE EVENT DATE: 20150303
